FAERS Safety Report 7762766-2 (Version None)
Quarter: 2011Q3

REPORT INFORMATION
  Report Type: 
  Country: None (occurrence: None)
  Receive Date: 20110920
  Receipt Date: 20110916
  Transmission Date: 20111222
  Serious: Yes (Other)
  Sender: FDA-Public Use
  Company Number: US-ABBOTT-11P-163-0855568-00

PATIENT
  Sex: Female
  Weight: 79.45 kg

DRUGS (13)
  1. CLOBETASOL PROPIONATE [Concomitant]
     Indication: PSORIASIS
     Dosage: FACE, SCALP
     Route: 061
     Dates: start: 20110101, end: 20110210
  2. HUMIRA [Suspect]
     Indication: PSORIASIS
     Route: 058
     Dates: start: 20110110
  3. PHENERGAN EXPECTORANT W/ CODEINE [Concomitant]
     Indication: BRONCHITIS
     Route: 048
     Dates: start: 20110205, end: 20110208
  4. TYLENOL-500 [Concomitant]
     Indication: HEADACHE
  5. PRENATAL VITAMINS [Concomitant]
     Indication: PRODUCT USED FOR UNKNOWN INDICATION
     Route: 048
     Dates: start: 20110214
  6. PROVERA [Concomitant]
     Indication: MENSTRUAL DISORDER
     Route: 048
     Dates: start: 20110124, end: 20110203
  7. IBUPROFEN [Concomitant]
     Indication: PYREXIA
     Route: 048
     Dates: start: 20110110, end: 20110210
  8. CAFFEINE [Concomitant]
     Indication: BLOOD CAFFEINE
     Dosage: SODA 1.5 SERVING
     Route: 048
     Dates: start: 20110110, end: 20110210
  9. CAFFEINE [Concomitant]
     Dosage: SODA 1.0 SERVING
     Route: 048
     Dates: start: 20110211
  10. NYQUIL [Concomitant]
     Indication: BRONCHITIS
     Dosage: LIQUICAPS
     Route: 048
     Dates: start: 20110201, end: 20110203
  11. TYLENOL-500 [Concomitant]
     Indication: PYREXIA
     Route: 048
     Dates: start: 20110110
  12. MULTI-VITAMINS [Concomitant]
     Indication: BRONCHITIS
     Route: 048
     Dates: start: 20110207, end: 20110213
  13. LEVAQUIN [Concomitant]
     Indication: BRONCHITIS
     Route: 048
     Dates: start: 20110210, end: 20110214

REACTIONS (4)
  - PELVIC PAIN [None]
  - ABORTION SPONTANEOUS [None]
  - BRONCHITIS [None]
  - MATERNAL EXPOSURE DURING PREGNANCY [None]
